FAERS Safety Report 12837446 (Version 1)
Quarter: 2016Q4

REPORT INFORMATION
  Report Type: Spontaneous
  Country: US (occurrence: US)
  Receive Date: 20161011
  Receipt Date: 20161011
  Transmission Date: 20170207
  Serious: Yes (Other)
  Sender: FDA-Public Use
  Company Number: US-BEH-2016073987

PATIENT
  Sex: Male
  Weight: 95.37 kg

DRUGS (8)
  1. EPIPEN [Concomitant]
     Active Substance: EPINEPHRINE
  2. ANDROGEL [Concomitant]
     Active Substance: TESTOSTERONE
  3. ASPIRIN. [Concomitant]
     Active Substance: ASPIRIN
  4. HEPARIN [Concomitant]
     Active Substance: HEPARIN SODIUM
  5. DIPHENHYDRAMINE. [Concomitant]
     Active Substance: DIPHENHYDRAMINE
  6. ADVIL (MEFENAMIC ACID) [Concomitant]
     Active Substance: MEFENAMIC ACID
  7. BERINERT [Suspect]
     Active Substance: HUMAN C1-ESTERASE INHIBITOR
     Indication: COMPLEMENT DEFICIENCY DISEASE
     Dosage: 2000 IU, UNK
     Route: 042
     Dates: start: 20151020
  8. SODIUM CHLORIDE. [Concomitant]
     Active Substance: SODIUM CHLORIDE

REACTIONS (2)
  - Hereditary angioedema [Unknown]
  - Laryngeal oedema [Unknown]
